FAERS Safety Report 9169164 (Version 2)
Quarter: 2013Q2

REPORT INFORMATION
  Report Type: Spontaneous
  Country: JP (occurrence: JP)
  Receive Date: 20130318
  Receipt Date: 20130402
  Transmission Date: 20140414
  Serious: Yes (Disabling, Other)
  Sender: FDA-Public Use
  Company Number: JP-ROCHE-1200826

PATIENT
  Age: 44 Year
  Sex: Female
  Weight: 35 kg

DRUGS (10)
  1. AVASTIN [Suspect]
     Indication: LUNG ADENOCARCINOMA RECURRENT
     Route: 041
     Dates: start: 20120820, end: 20121214
  2. CISPLATIN [Suspect]
     Indication: LUNG ADENOCARCINOMA RECURRENT
     Route: 041
     Dates: start: 20120820, end: 20120820
  3. CISPLATIN [Suspect]
     Indication: LUNG ADENOCARCINOMA RECURRENT
     Route: 041
     Dates: start: 20120918, end: 20121214
  4. ALIMTA [Suspect]
     Indication: LUNG ADENOCARCINOMA RECURRENT
     Route: 041
     Dates: start: 20120820, end: 20121115
  5. ALIMTA [Suspect]
     Indication: LUNG ADENOCARCINOMA RECURRENT
     Route: 041
     Dates: start: 20121214, end: 20121214
  6. PANVITAN [Concomitant]
     Indication: VITAMIN SUPPLEMENTATION
     Route: 048
     Dates: start: 20120802, end: 20130213
  7. PROTECADIN [Concomitant]
     Indication: GASTRITIS PROPHYLAXIS
     Route: 048
     Dates: start: 20120819, end: 20121004
  8. SELBEX [Concomitant]
     Indication: PROPHYLAXIS
     Route: 048
     Dates: start: 20121018, end: 20121114
  9. PARIET [Concomitant]
     Indication: GASTRITIS PROPHYLAXIS
     Route: 048
     Dates: start: 20121115, end: 20121216
  10. PARIET [Concomitant]
     Indication: GASTRITIS PROPHYLAXIS
     Route: 048
     Dates: start: 20130114, end: 20130123

REACTIONS (8)
  - Optic atrophy [Recovered/Resolved with Sequelae]
  - Leukoencephalopathy [Not Recovered/Not Resolved]
  - Hypertension [Recovering/Resolving]
  - Dizziness [Recovered/Resolved]
  - Constipation [Recovered/Resolved]
  - Nausea [Recovered/Resolved]
  - Headache [Recovered/Resolved]
  - Blindness unilateral [Unknown]
